FAERS Safety Report 5734284-4 (Version None)
Quarter: 2008Q2

REPORT INFORMATION
  Report Type: 
  Country: None (occurrence: None)
  Receive Date: 20080512
  Receipt Date: 20080501
  Transmission Date: 20081010
  Serious: Yes (Other)
  Sender: FDA-Public Use
  Company Number: US-JNJFOC-20080403850

PATIENT
  Sex: Female
  Weight: 105.24 kg

DRUGS (15)
  1. REMICADE [Suspect]
     Indication: PSORIATIC ARTHROPATHY
     Route: 042
  2. REMICADE [Suspect]
     Indication: PSORIASIS
     Route: 042
  3. DOVENEX [Concomitant]
  4. CLARINEX [Concomitant]
  5. AMBIEN [Concomitant]
  6. ZOVIRAX [Concomitant]
  7. CELEXA [Concomitant]
  8. FLEXERIL [Concomitant]
  9. ULTRACET [Concomitant]
  10. OSCAL [Concomitant]
  11. ASPIRIN [Concomitant]
  12. M.V.I. [Concomitant]
  13. ASCORBIC ACID [Concomitant]
  14. HYDROCHLOROTHIAZIDE [Concomitant]
  15. METHOTREXATE [Concomitant]

REACTIONS (1)
  - B-CELL LYMPHOMA STAGE III [None]
